FAERS Safety Report 9654750 (Version 2)
Quarter: 2013Q4

REPORT INFORMATION
  Report Type: Spontaneous
  Country: DE (occurrence: None)
  Receive Date: 20131015
  Receipt Date: 20131119
  Transmission Date: 20140711
  Serious: Yes (Death)
  Sender: FDA-Public Use
  Company Number: 2013038281

PATIENT
  Age: 68 Year
  Sex: Female

DRUGS (3)
  1. PRIVIGEN [Suspect]
     Indication: CHRONIC LYMPHOCYTIC LEUKAEMIA
     Dosage: INFUSION RATE: MIN 0.35 ML/MIN, MAX 2.36 ML/MIN
     Dates: start: 20120622, end: 20120622
  2. PRIVIGEN [Suspect]
     Indication: SECONDARY IMMUNODEFICIENCY
     Dosage: INFUSION RATE: MIN 0.35 ML/MIN, MAX 2.36 ML/MIN
     Dates: start: 20120622, end: 20120622
  3. PRIVIGEN [Suspect]
     Indication: INFECTION
     Dosage: INFUSION RATE: MIN 0.35 ML/MIN, MAX 2.36 ML/MIN
     Dates: start: 20120622, end: 20120622

REACTIONS (4)
  - Chronic lymphocytic leukaemia [None]
  - Organising pneumonia [None]
  - Lung infiltration [None]
  - Organising pneumonia [None]
